FAERS Safety Report 8222878-6 (Version None)
Quarter: 2012Q1

REPORT INFORMATION
  Report Type: 
  Country: None (occurrence: None)
  Receive Date: 20120320
  Receipt Date: 20120319
  Transmission Date: 20120608
  Serious: Yes (Other)
  Sender: FDA-Public Use
  Company Number: US-PFIZER INC-2012071457

PATIENT
  Sex: Male
  Weight: 72.562 kg

DRUGS (6)
  1. IBUPROFEN [Concomitant]
     Indication: ARTHRALGIA
     Dosage: UNK
  2. IBUPROFEN [Concomitant]
     Indication: BACK PAIN
  3. NAPROXEN (ALEVE) [Concomitant]
     Indication: BACK PAIN
  4. CHANTIX [Suspect]
     Indication: SMOKING CESSATION THERAPY
     Dosage: 0.5 MG, 1X/DAY
     Route: 048
     Dates: start: 20120101, end: 20120101
  5. NAPROXEN (ALEVE) [Concomitant]
     Indication: ARTHRALGIA
     Dosage: UNK
  6. CHANTIX [Suspect]
     Dosage: 1 MG, 2X/DAY
     Route: 048
     Dates: start: 20120101, end: 20120301

REACTIONS (6)
  - ANXIETY [None]
  - EMOTIONAL DISORDER [None]
  - DEPRESSION [None]
  - FEELING ABNORMAL [None]
  - SUICIDAL BEHAVIOUR [None]
  - AGITATION [None]
